FAERS Safety Report 11472369 (Version 2)
Quarter: 2019Q4

REPORT INFORMATION
  Report Type: Report from Study
  Country: US (occurrence: US)
  Receive Date: 20150908
  Receipt Date: 20191107
  Transmission Date: 20200122
  Serious: No
  Sender: FDA-Public Use
  Company Number: US-SA-2015SA113322

PATIENT
  Age: 55 Year
  Sex: Female

DRUGS (2)
  1. INSULIN GLARGINE [Suspect]
     Active Substance: INSULIN GLARGINE
     Dosage: 55 U
     Dates: start: 20150725
  2. INSULIN GLARGINE [Suspect]
     Active Substance: INSULIN GLARGINE
     Indication: TYPE 2 DIABETES MELLITUS
     Dosage: UNK
     Dates: start: 20150701

REACTIONS (4)
  - Blood glucose increased [Unknown]
  - Visual impairment [Not Recovered/Not Resolved]
  - Wrong technique in device usage process [Unknown]
  - Product storage error [Unknown]

NARRATIVE: CASE EVENT DATE: 20150726
